FAERS Safety Report 7099168-0 (Version None)
Quarter: 2010Q4

REPORT INFORMATION
  Report Type: 
  Country: None (occurrence: None)
  Receive Date: 20101112
  Receipt Date: 20101103
  Transmission Date: 20110411
  Serious: Yes (Hospitalization)
  Sender: FDA-Public Use
  Company Number: PHHY2010US64758

PATIENT
  Sex: Male
  Weight: 81.65 kg

DRUGS (10)
  1. EXJADE [Suspect]
     Indication: CONGENITAL APLASTIC ANAEMIA
     Dosage: 1000 MG, BID
     Route: 048
     Dates: start: 20100518
  2. MAGNESIUM [Concomitant]
  3. POTASSIUM CHLORIDE [Concomitant]
  4. MELOXICAM [Concomitant]
  5. HYDROCODONE [Concomitant]
  6. APAP TAB [Concomitant]
  7. ASPIRIN [Concomitant]
  8. ALLOPURINOL [Concomitant]
  9. FUROSEMIDE [Concomitant]
  10. INDOMETHACIN [Concomitant]

REACTIONS (2)
  - RENAL DISORDER [None]
  - RENAL SURGERY [None]
